FAERS Safety Report 6521652-6 (Version None)
Quarter: 2009Q4

REPORT INFORMATION
  Report Type: 
  Country: None (occurrence: None)
  Receive Date: 20091230
  Receipt Date: 20091218
  Transmission Date: 20100525
  Serious: Yes (Disabling)
  Sender: FDA-Public Use
  Company Number: PHHY2009CA54605

PATIENT
  Sex: Female

DRUGS (7)
  1. ACLASTA [Suspect]
     Indication: OSTEOPOROSIS
     Dosage: 5MG YEARLY
     Dates: start: 20091102
  2. NEXIUM [Concomitant]
  3. MAXALT [Concomitant]
  4. FIORINAL [Concomitant]
  5. ADVIL [Concomitant]
  6. CALCIUM WITH VITAMIN D [Concomitant]
  7. ELAVIL [Concomitant]

REACTIONS (5)
  - GINGIVAL PAIN [None]
  - ORAL PAIN [None]
  - TOOTH EXTRACTION [None]
  - TOOTH FRACTURE [None]
  - TOOTH REPAIR [None]
